FAERS Safety Report 7391171-6 (Version None)
Quarter: 2011Q2

REPORT INFORMATION
  Report Type: 
  Country: None (occurrence: None)
  Receive Date: 20110404
  Receipt Date: 20100713
  Transmission Date: 20111010
  Serious: Yes (Other)
  Sender: FDA-Public Use
  Company Number: US-PFIZER INC-2010069315

PATIENT
  Sex: Female
  Weight: 82 kg

DRUGS (3)
  1. REBIF [Suspect]
     Indication: MULTIPLE SCLEROSIS
     Dosage: 44 MCG, 3 TIMES PER WEEK
     Route: 058
     Dates: start: 20060602
  2. ZOLOFT [Suspect]
     Indication: HOT FLUSH
     Dosage: 50 MG, UNK
     Dates: start: 20100101, end: 20100101
  3. ZOLOFT [Suspect]
     Indication: NIGHT SWEATS
     Dosage: 25 MCG, UNK
     Dates: start: 20100101, end: 20100101

REACTIONS (4)
  - DRUG ERUPTION [None]
  - BACK PAIN [None]
  - HOT FLUSH [None]
  - NIGHT SWEATS [None]
